FAERS Safety Report 6494990-3 (Version None)
Quarter: 2009Q4

REPORT INFORMATION
  Report Type: 
  Country: None (occurrence: None)
  Receive Date: 20091214
  Receipt Date: 20090515
  Transmission Date: 20100525
  Serious: No
  Sender: FDA-Public Use
  Company Number: US-BRISTOL-MYERS SQUIBB COMPANY-14592059

PATIENT
  Age: 87 Year
  Sex: Female
  Weight: 61 kg

DRUGS (11)
  1. ABILIFY [Suspect]
     Indication: HALLUCINATION
     Dosage: INSTEAD OF 2.5MG/D TAKEN 25MG/D FOR 3 TO 4 WEEKS
     Dates: start: 20090305
  2. LOPRESSOR [Concomitant]
  3. THYROID SUPPLEMENT [Concomitant]
  4. CALCIUM [Concomitant]
     Route: 048
  5. ASPIRIN [Concomitant]
     Dosage: LOW DOSE ASPIRIN
     Route: 048
  6. TRAZODONE HCL [Concomitant]
     Route: 048
  7. PROTONIX [Concomitant]
     Route: 048
  8. BENICAR [Concomitant]
     Route: 048
  9. SYNTHROID [Concomitant]
     Route: 048
  10. METOPROLOL [Concomitant]
     Route: 048
  11. SIMVASTATIN [Concomitant]
     Route: 048

REACTIONS (5)
  - AKATHISIA [None]
  - DECREASED INTEREST [None]
  - MEDICATION ERROR [None]
  - SEDATION [None]
  - URINARY TRACT INFECTION [None]
